FAERS Safety Report 18357477 (Version 1)
Quarter: 2020Q4

REPORT INFORMATION
  Report Type: Report from Study
  Country: None (occurrence: US)
  Receive Date: 20201008
  Receipt Date: 20201008
  Transmission Date: 20210114
  Serious: Yes (Other)
  Sender: FDA-Public Use
  Company Number: US-ABBVIE-20K-163-3226309-00

PATIENT
  Sex: Female

DRUGS (2)
  1. SULFASALAZINE. [Suspect]
     Active Substance: SULFASALAZINE
     Indication: PRODUCT USED FOR UNKNOWN INDICATION
     Route: 065
  2. HUMIRA [Suspect]
     Active Substance: ADALIMUMAB
     Indication: COLITIS ULCERATIVE
     Route: 058
     Dates: start: 20190925

REACTIONS (20)
  - Nasal septum deviation [Not Recovered/Not Resolved]
  - Skin discomfort [Not Recovered/Not Resolved]
  - Haematochezia [Not Recovered/Not Resolved]
  - Heart rate increased [Not Recovered/Not Resolved]
  - Sciatica [Unknown]
  - Therapeutic response shortened [Unknown]
  - Malaise [Not Recovered/Not Resolved]
  - Hypoaesthesia [Recovering/Resolving]
  - Dyspnoea exertional [Unknown]
  - Nausea [Unknown]
  - Headache [Unknown]
  - Defaecation urgency [Recovered/Resolved]
  - Fatigue [Not Recovered/Not Resolved]
  - Insomnia [Not Recovered/Not Resolved]
  - Diarrhoea [Recovered/Resolved]
  - Influenza like illness [Unknown]
  - Anxiety [Not Recovered/Not Resolved]
  - Rectal haemorrhage [Recovered/Resolved]
  - Anaemia [Unknown]
  - Abdominal pain [Recovered/Resolved]

NARRATIVE: CASE EVENT DATE: 2019
